FAERS Safety Report 12343441 (Version 3)
Quarter: 2016Q2

REPORT INFORMATION
  Report Type: Spontaneous
  Country: US (occurrence: US)
  Receive Date: 20160506
  Receipt Date: 20160616
  Transmission Date: 20160815
  Serious: Yes (Other)
  Sender: FDA-Public Use
  Company Number: US-PFIZER INC-2016245493

PATIENT
  Age: 64 Year
  Sex: Female
  Weight: 74 kg

DRUGS (1)
  1. GABAPENTIN. [Suspect]
     Active Substance: GABAPENTIN
     Indication: NEURALGIA
     Dosage: 600 MG, 3X/DAY

REACTIONS (4)
  - Drug ineffective for unapproved indication [Unknown]
  - Overdose [Unknown]
  - Suicidal ideation [Not Recovered/Not Resolved]
  - Pain [Not Recovered/Not Resolved]
